FAERS Safety Report 5690066-3 (Version None)
Quarter: 2008Q1

REPORT INFORMATION
  Report Type: 
  Country: None (occurrence: None)
  Receive Date: 20080331
  Receipt Date: 20080331
  Transmission Date: 20080703
  Serious: Yes (Life-Threatening, Other)
  Sender: FDA-Public Use
  Company Number: None

PATIENT
  Age: 14 Year
  Sex: Male
  Weight: 77.1115 kg

DRUGS (2)
  1. SINGULAIR [Suspect]
     Indication: ASTHMA
     Dosage: 1 PILL ONCE DAILY
     Dates: start: 20060101, end: 20070401
  2. SINGULAIR [Suspect]
     Indication: HYPERSENSITIVITY
     Dosage: 1 PILL ONCE DAILY
     Dates: start: 20060101, end: 20070401

REACTIONS (4)
  - ABNORMAL BEHAVIOUR [None]
  - HALLUCINATIONS, MIXED [None]
  - INSOMNIA [None]
  - SCREAMING [None]
